FAERS Safety Report 10564113 (Version 2)
Quarter: 2014Q4

REPORT INFORMATION
  Report Type: Report from Study
  Country: ES (occurrence: ES)
  Receive Date: 20141104
  Receipt Date: 20141104
  Transmission Date: 20150529
  Serious: Yes (Hospitalization)
  Sender: FDA-Public Use
  Company Number: ES-TAKEDA-2014JNJ005058

PATIENT

DRUGS (6)
  1. REVLIMID [Suspect]
     Active Substance: LENALIDOMIDE
     Indication: PLASMA CELL MYELOMA
     Dosage: 25 MG, UNK
     Route: 048
     Dates: start: 20140627, end: 20140814
  2. ACETAMINOPHEN. [Concomitant]
     Active Substance: ACETAMINOPHEN
  3. VELCADE [Suspect]
     Active Substance: BORTEZOMIB
     Indication: PLASMA CELL MYELOMA
     Dosage: 2.4 MG, UNK
     Route: 042
     Dates: start: 20140627, end: 20140804
  4. SEGURIL [Concomitant]
     Active Substance: FUROSEMIDE
  5. DEXAMETHASONE. [Suspect]
     Active Substance: DEXAMETHASONE
     Indication: PLASMA CELL MYELOMA
     Dosage: 40 MG, UNK
     Route: 048
     Dates: start: 20140627, end: 20140805
  6. MERONEM [Concomitant]
     Active Substance: MEROPENEM

REACTIONS (3)
  - Rash [Recovered/Resolved]
  - Puncture site reaction [Unknown]
  - Pleural effusion [Recovering/Resolving]

NARRATIVE: CASE EVENT DATE: 20140815
